FAERS Safety Report 20823839 (Version 1)
Quarter: 2022Q2

REPORT INFORMATION
  Report Type: Spontaneous
  Country: US (occurrence: None)
  Receive Date: 20220512
  Receipt Date: 20220512
  Transmission Date: 20220721
  Serious: No
  Sender: FDA-Public Use
  Company Number: None

PATIENT
  Age: 53 Year
  Sex: Male
  Weight: 69.75 kg

DRUGS (12)
  1. PAXLOVID [Suspect]
     Active Substance: NIRMATRELVIR\RITONAVIR
     Indication: COVID-19
     Dates: start: 20220501, end: 20220506
  2. Amlodapine [Concomitant]
  3. LISINOPRIL [Concomitant]
     Active Substance: LISINOPRIL
  4. FLOMAX [Concomitant]
     Active Substance: TAMSULOSIN HYDROCHLORIDE
  5. AMBIEN [Concomitant]
     Active Substance: ZOLPIDEM TARTRATE
  6. LOVASTATIN [Concomitant]
     Active Substance: LOVASTATIN
  7. VITAMIN A [Concomitant]
     Active Substance: VITAMIN A
  8. VITAMIN C [Concomitant]
     Active Substance: ASCORBIC ACID
  9. VITAMIN D [Concomitant]
     Active Substance: VITAMIN D NOS
  10. VITAMIN E [Concomitant]
     Active Substance: .ALPHA.-TOCOPHEROL
  11. ZINC [Concomitant]
     Active Substance: ZINC
  12. QUERCETIN [Concomitant]
     Active Substance: QUERCETIN

REACTIONS (2)
  - COVID-19 [None]
  - Condition aggravated [None]

NARRATIVE: CASE EVENT DATE: 20220512
